FAERS Safety Report 12748973 (Version 1)
Quarter: 2016Q3

REPORT INFORMATION
  Report Type: Spontaneous
  Country: US (occurrence: US)
  Receive Date: 20160915
  Receipt Date: 20160915
  Transmission Date: 20161109
  Serious: No
  Sender: FDA-Public Use
  Company Number: US-ASTELLAS-2016US010661

PATIENT
  Age: 83 Year
  Sex: Male

DRUGS (2)
  1. XTANDI [Suspect]
     Active Substance: ENZALUTAMIDE
     Indication: PROSTATE CANCER
     Route: 065
     Dates: start: 20160226
  2. XTANDI [Suspect]
     Active Substance: ENZALUTAMIDE
     Dosage: 02 OR 03 OR 04 PILLS RANDOMLY, ONCE DAILY
     Route: 065

REACTIONS (3)
  - Skin lesion [Unknown]
  - Hallucination [Not Recovered/Not Resolved]
  - Inappropriate schedule of drug administration [Unknown]

NARRATIVE: CASE EVENT DATE: 20160228
